FAERS Safety Report 16543660 (Version 1)
Quarter: 2019Q3

REPORT INFORMATION
  Report Type: Spontaneous
  Country: US (occurrence: US)
  Receive Date: 20190709
  Receipt Date: 20190709
  Transmission Date: 20191004
  Serious: No
  Sender: FDA-Public Use
  Company Number: US-GLENMARK PHARMACEUTICALS-2019GMK041221

PATIENT

DRUGS (4)
  1. METOPROLOL. [Concomitant]
     Active Substance: METOPROLOL
     Indication: HYPERTENSION
     Dosage: 50 MG, OD
     Route: 065
  2. GABAPENTIN TABLETS [Suspect]
     Active Substance: GABAPENTIN
     Dosage: 600 MG, UNK
     Route: 065
  3. AMLODIPINE BESYLATE. [Concomitant]
     Active Substance: AMLODIPINE BESYLATE
     Indication: HYPERTENSION
     Dosage: 5 MG, OD
     Route: 065
  4. GABAPENTIN TABLETS [Suspect]
     Active Substance: GABAPENTIN
     Indication: NERVE INJURY
     Dosage: 600 MG, TID
     Route: 065

REACTIONS (1)
  - Drug ineffective for unapproved indication [Unknown]
